FAERS Safety Report 21744717 (Version 1)
Quarter: 2022Q4

REPORT INFORMATION
  Report Type: Other
  Country: PT (occurrence: PT)
  Receive Date: 20221219
  Receipt Date: 20221219
  Transmission Date: 20230112
  Serious: Yes (Life-Threatening, Hospitalization, Other)
  Sender: FDA-Public Use
  Company Number: PT-KERNPHARMA-202202173

PATIENT

DRUGS (2)
  1. DEXAMETHASONE [Suspect]
     Active Substance: DEXAMETHASONE
     Indication: Immunosuppressant drug therapy
     Dosage: UNK, CUMULATIVE DOSE IN TWO MONTHS OF 590MG
     Route: 065
     Dates: start: 202203
  2. DEXAMETHASONE [Suspect]
     Active Substance: DEXAMETHASONE
     Indication: Central nervous system lesion

REACTIONS (4)
  - Pneumonia [Recovering/Resolving]
  - Immune-mediated lung disease [Recovering/Resolving]
  - Cytomegalovirus infection [Recovering/Resolving]
  - Pneumocystis jirovecii infection [Recovering/Resolving]

NARRATIVE: CASE EVENT DATE: 20220501
